FAERS Safety Report 25701295 (Version 2)
Quarter: 2025Q4

REPORT INFORMATION
  Report Type: Report from Study
  Country: EG (occurrence: EG)
  Receive Date: 20250819
  Receipt Date: 20251015
  Transmission Date: 20260118
  Serious: Yes (Hospitalization)
  Sender: TAIHO ONCOLOGY INC
  Company Number: EG-SERVIER-S25011678

PATIENT
  Age: 61 Year
  Sex: Female
  Weight: 78 kg

DRUGS (2)
  1. LONSURF [Suspect]
     Active Substance: TIPIRACIL HYDROCHLORIDE\TRIFLURIDINE
     Indication: Colorectal cancer metastatic
     Dosage: 40 MG, BID
     Route: 048
     Dates: start: 202505, end: 20250716
  2. LONSURF [Suspect]
     Active Substance: TIPIRACIL HYDROCHLORIDE\TRIFLURIDINE
     Dosage: 60 MG, QD (2X20MG TABLETS IN THE MORNING AND 1 AT NIGHT)?DAILY DOSE: 60.0 MILLIGRAM(S)
     Route: 048
     Dates: start: 20250801

REACTIONS (9)
  - Balance disorder [Recovering/Resolving]
  - Dizziness [Recovering/Resolving]
  - Cerebral hypoperfusion [Recovering/Resolving]
  - Blood pressure fluctuation [Recovered/Resolved]
  - Nausea [Not Recovered/Not Resolved]
  - Abdominal pain upper [Not Recovered/Not Resolved]
  - Product use issue [Recovered/Resolved]
  - Musculoskeletal chest pain [Not Recovered/Not Resolved]
  - Diarrhoea [Not Recovered/Not Resolved]

NARRATIVE: CASE EVENT DATE: 20250716
